FAERS Safety Report 15496567 (Version 1)
Quarter: 2018Q4

REPORT INFORMATION
  Report Type: Report from Study
  Country: None (occurrence: RO)
  Receive Date: 20181013
  Receipt Date: 20181013
  Transmission Date: 20190205
  Serious: Yes (Other)
  Sender: FDA-Public Use
  Company Number: RO-ABBVIE-18S-135-2516609-00

PATIENT
  Age: 63 Year
  Sex: Female

DRUGS (4)
  1. VIEKIRAX [Suspect]
     Active Substance: OMBITASVIR\PARITAPREVIR\RITONAVIR
     Indication: HEPATIC CIRRHOSIS
  2. EXVIERA [Suspect]
     Active Substance: DASABUVIR
     Indication: HEPATITIS C
     Route: 048
     Dates: start: 20180927
  3. EXVIERA [Suspect]
     Active Substance: DASABUVIR
     Indication: HEPATIC CIRRHOSIS
  4. VIEKIRAX [Suspect]
     Active Substance: OMBITASVIR\PARITAPREVIR\RITONAVIR
     Indication: HEPATITIS C
     Route: 048
     Dates: start: 20180927

REACTIONS (6)
  - Headache [Recovered/Resolved]
  - Vision blurred [Recovered/Resolved]
  - Dizziness [Recovered/Resolved]
  - Neck pain [Recovered/Resolved]
  - Intracranial pressure increased [Recovered/Resolved]
  - Fatigue [Not Recovered/Not Resolved]

NARRATIVE: CASE EVENT DATE: 20180927
